FAERS Safety Report 6297476-4 (Version None)
Quarter: 2009Q3

REPORT INFORMATION
  Report Type: 
  Country: None (occurrence: None)
  Receive Date: 20090805
  Receipt Date: 20090724
  Transmission Date: 20100115
  Serious: Yes (Life-Threatening, Hospitalization, Other)
  Sender: FDA-Public Use
  Company Number: IT-PFIZER INC-2009215720

PATIENT
  Age: 57 Year

DRUGS (2)
  1. SUNITINIB MALATE [Suspect]
     Indication: BREAST CANCER
     Dosage: 37.5 MG, 1X/DAY
     Route: 048
     Dates: start: 20081028, end: 20090519
  2. CAPECITABINE [Suspect]
     Indication: BREAST CANCER
     Dosage: 1400 MG, 2XDAY DAY 1-14EVERY 3 WK
     Route: 048
     Dates: start: 20081028, end: 20090512

REACTIONS (1)
  - RENAL FAILURE [None]
